FAERS Safety Report 23824610 (Version 1)
Quarter: 2024Q2

REPORT INFORMATION
  Report Type: Spontaneous
  Country: US (occurrence: US)
  Receive Date: 20240507
  Receipt Date: 20240507
  Transmission Date: 20240715
  Serious: Yes (Hospitalization, Other)
  Sender: FDA-Public Use
  Company Number: US-SA-SAC20240503000821

PATIENT
  Age: 62 Year
  Sex: Male
  Weight: 95.25 kg

DRUGS (1)
  1. DUPIXENT [Suspect]
     Active Substance: DUPILUMAB
     Indication: Asthma
     Dosage: 300 MG, QOW
     Route: 058
     Dates: start: 2022

REACTIONS (7)
  - Pneumonia [Unknown]
  - Chest pain [Recovered/Resolved]
  - Fatigue [Recovered/Resolved]
  - Dyspnoea [Recovered/Resolved]
  - Wheezing [Recovered/Resolved]
  - Hospitalisation [Unknown]
  - Sinusitis [Unknown]

NARRATIVE: CASE EVENT DATE: 20240401
